APPROVED DRUG PRODUCT: NORPRAMIN
Active Ingredient: DESIPRAMINE HYDROCHLORIDE
Strength: 150MG
Dosage Form/Route: TABLET;ORAL
Application: N014399 | Product #006 | TE Code: AB
Applicant: VALIDUS PHARMACEUTICALS LLC
Approved: Approved Prior to Jan 1, 1982 | RLD: Yes | RS: No | Type: RX